FAERS Safety Report 20802848 (Version 1)
Quarter: 2022Q2

REPORT INFORMATION
  Report Type: Spontaneous
  Country: US (occurrence: None)
  Receive Date: 20220509
  Receipt Date: 20220509
  Transmission Date: 20220721
  Serious: No
  Sender: FDA-Public Use
  Company Number: None

PATIENT
  Age: 23 Year
  Sex: Female
  Weight: 58.5 kg

DRUGS (3)
  1. ZAFEMY [Suspect]
     Active Substance: ETHINYL ESTRADIOL\NORELGESTROMIN
     Indication: Contraception
     Dosage: OTHER STRENGTH : MCG;?OTHER QUANTITY : 3 PATCH(ES);?FREQUENCY : WEEKLY;?
     Route: 062
     Dates: start: 20220401, end: 20220509
  2. Daily multi vitamin [Concomitant]
  3. IRON [Concomitant]
     Active Substance: IRON

REACTIONS (4)
  - Muscle spasms [None]
  - Intermenstrual bleeding [None]
  - Product substitution issue [None]
  - Product quality issue [None]

NARRATIVE: CASE EVENT DATE: 20220509
